FAERS Safety Report 8932034 (Version 2)
Quarter: 2012Q4

REPORT INFORMATION
  Report Type: 
  Country: IT (occurrence: IT)
  Receive Date: 20121128
  Receipt Date: 20121207
  Transmission Date: 20130627
  Serious: Yes (Hospitalization)
  Sender: FDA-Public Use
  Company Number: IT-PFIZER INC-2012295642

PATIENT
  Age: 23 Year
  Sex: Female

DRUGS (2)
  1. ALPRAZOLAM [Suspect]
     Indication: DEPRESSION
     Dosage: 10 mg, single
     Route: 048
     Dates: start: 20121105, end: 20121105
  2. PAROXETINE [Suspect]
     Dosage: 300 mg, single
     Route: 048
     Dates: start: 20121105

REACTIONS (2)
  - Substance abuse [Recovered/Resolved with Sequelae]
  - Depression [Recovered/Resolved with Sequelae]
